FAERS Safety Report 9496133 (Version 3)
Quarter: 2013Q4

REPORT INFORMATION
  Report Type: Spontaneous
  Country: FR (occurrence: FR)
  Receive Date: 20130904
  Receipt Date: 20131021
  Transmission Date: 20140711
  Serious: Yes (Other)
  Sender: FDA-Public Use
  Company Number: FR-AMGEN-FRASP2013061341

PATIENT
  Sex: Female
  Weight: 45 kg

DRUGS (6)
  1. XGEVA [Suspect]
     Indication: MYELOID LEUKAEMIA
     Dosage: 120 MG, QMO
     Route: 058
     Dates: start: 20130718, end: 20130822
  2. CORTICOSTEROIDS [Concomitant]
     Indication: GRAFT VERSUS HOST DISEASE
     Dosage: 20 MG, QD
     Route: 048
     Dates: start: 2003
  3. CORTICOSTEROIDS [Concomitant]
     Indication: GRAFT VERSUS HOST DISEASE
  4. CELLCEPT                           /01275102/ [Concomitant]
     Indication: GRAFT VERSUS HOST DISEASE
     Dosage: 250 MG, QD
     Route: 048
  5. ZELITREX [Concomitant]
     Indication: GRAFT VERSUS HOST DISEASE
     Dosage: 500 MG, QD
     Route: 048
  6. SERETID [Concomitant]
     Indication: GRAFT VERSUS HOST DISEASE
     Dosage: 500/50

REACTIONS (2)
  - Dyspnoea [Recovered/Resolved]
  - Palpitations [Recovered/Resolved]
